FAERS Safety Report 7772052-2 (Version None)
Quarter: 2011Q3

REPORT INFORMATION
  Report Type: 
  Country: None (occurrence: None)
  Receive Date: 20110922
  Receipt Date: 20100303
  Transmission Date: 20111222
  Serious: Yes (Other)
  Sender: FDA-Public Use
  Company Number: US-ASTRAZENECA-2009SE15649

PATIENT
  Sex: Male

DRUGS (6)
  1. SEROQUEL [Suspect]
     Route: 048
     Dates: start: 20020107
  2. SEROQUEL [Suspect]
     Dosage: 300 MG
     Route: 048
  3. HALOPERIDOL [Concomitant]
     Dates: start: 20020107
  4. LOVASTATIN [Concomitant]
     Dates: start: 20020107
  5. MIRTAZAPINE [Concomitant]
     Dates: start: 20020107
  6. CLONAZEPAM [Concomitant]
     Dates: start: 20020107

REACTIONS (2)
  - TYPE 2 DIABETES MELLITUS [None]
  - ERECTILE DYSFUNCTION [None]
